FAERS Safety Report 5935256-7 (Version None)
Quarter: 2008Q4

REPORT INFORMATION
  Report Type: 
  Country: None (occurrence: None)
  Receive Date: 20081020
  Receipt Date: 20080724
  Transmission Date: 20090506
  Serious: Yes (Other)
  Sender: FDA-Public Use
  Company Number: US-WYE-H05251108

PATIENT
  Age: 59 Year
  Sex: Female
  Weight: 58.11 kg

DRUGS (7)
  1. ADVIL PM [Suspect]
     Indication: BACK PAIN
     Dosage: 2 CAPSULE 1X 1 DAY, ORAL
     Route: 048
     Dates: start: 20080723
  2. ADVIL PM [Suspect]
     Indication: INSOMNIA
     Dosage: 2 CAPSULE 1X 1 DAY, ORAL
     Route: 048
     Dates: start: 20080723
  3. VITAMIN B12 [Concomitant]
  4. DRAMAMINE [Concomitant]
  5. ULTRAM [Concomitant]
  6. ONE-A-DAY (ASCORBIC ACID/CYANOCOBALAMIN/ERGOCALCIFEROL/NICOTINAMIDE/PY [Concomitant]
  7. POTASSIUM CHLORIDE [Concomitant]

REACTIONS (2)
  - ABDOMINAL PAIN UPPER [None]
  - FEELING ABNORMAL [None]
